FAERS Safety Report 12632888 (Version 2)
Quarter: 2016Q3

REPORT INFORMATION
  Report Type: Spontaneous
  Country: US (occurrence: US)
  Receive Date: 20160808
  Receipt Date: 20160808
  Transmission Date: 20161109
  Serious: No
  Sender: FDA-Public Use
  Company Number: US-BEH-2015057431

PATIENT
  Sex: Female
  Weight: 81 kg

DRUGS (32)
  1. PILOCARPINE. [Concomitant]
     Active Substance: PILOCARPINE
  2. PRILOSEC [Concomitant]
     Active Substance: OMEPRAZOLE MAGNESIUM
  3. DIPHENHYDRAMINE. [Concomitant]
     Active Substance: DIPHENHYDRAMINE
  4. CYCLOBENZAPRINE [Concomitant]
     Active Substance: CYCLOBENZAPRINE
  5. RESTASIS [Concomitant]
     Active Substance: CYCLOSPORINE
  6. CHROMIUM [Concomitant]
     Active Substance: CHROMIC CHLORIDE\CHROMIUM
  7. OCUVITE [Concomitant]
     Active Substance: VITAMINS
  8. HIZENTRA [Suspect]
     Active Substance: HUMAN IMMUNOGLOBULIN G
     Indication: HYPOGAMMAGLOBULINAEMIA
     Route: 058
  9. CALCIUM [Concomitant]
     Active Substance: CALCIUM
  10. VITAMIN D3 [Concomitant]
     Active Substance: CHOLECALCIFEROL
  11. EPIPEN [Concomitant]
     Active Substance: EPINEPHRINE
  12. PREDNISONE. [Concomitant]
     Active Substance: PREDNISONE
  13. LASIX [Concomitant]
     Active Substance: FUROSEMIDE
  14. TESTOSTERONE. [Concomitant]
     Active Substance: TESTOSTERONE
     Dosage: POWDER
  15. GUAIFENESIN. [Concomitant]
     Active Substance: GUAIFENESIN
  16. L-M-X [Concomitant]
  17. FOLIC ACID. [Concomitant]
     Active Substance: FOLIC ACID
  18. CRANBERRY. [Concomitant]
     Active Substance: CRANBERRY
  19. MELATONIN [Concomitant]
     Active Substance: MELATONIN
  20. VALERIAN ROOT [Concomitant]
     Active Substance: VALERIAN
  21. GARLIC. [Concomitant]
     Active Substance: GARLIC
  22. COQ10 [Concomitant]
     Active Substance: UBIDECARENONE
  23. ASPIRIN EC [Concomitant]
     Active Substance: ASPIRIN
  24. MALIC ACID [Concomitant]
     Active Substance: MALIC ACID
  25. COMPLETE MULTIVITAMIN [Concomitant]
     Active Substance: VITAMINS
  26. HIZENTRA [Suspect]
     Active Substance: HUMAN IMMUNOGLOBULIN G
     Indication: HYPOGAMMAGLOBULINAEMIA
     Route: 058
  27. ULTRAM [Concomitant]
     Active Substance: TRAMADOL HYDROCHLORIDE
  28. ASTEPRO [Concomitant]
     Active Substance: AZELASTINE HYDROCHLORIDE
  29. LEVOTHYROXINE. [Concomitant]
     Active Substance: LEVOTHYROXINE
  30. DHEA [Concomitant]
     Active Substance: PRASTERONE
  31. ESTER-C [Concomitant]
     Active Substance: CALCIUM\VITAMINS
  32. L-LYSINE [Concomitant]
     Active Substance: LYSINE

REACTIONS (1)
  - Sinusitis [Unknown]
